FAERS Safety Report 6221139-4 (Version None)
Quarter: 2009Q2

REPORT INFORMATION
  Report Type: 
  Country: None (occurrence: None)
  Receive Date: 20090608
  Receipt Date: 20090526
  Transmission Date: 20091009
  Serious: Yes (Other)
  Sender: FDA-Public Use
  Company Number: GB-GDP-09406002

PATIENT
  Age: 23 Year
  Sex: Male

DRUGS (2)
  1. BENZOYL PEROXIDE (BENZOYL PEROXIDE) [Suspect]
     Indication: ACNE
     Dosage: (1 DF QD TOPICAL)
     Route: 061
     Dates: start: 20090201
  2. CLINDAMYCIN PHOSPHATE [Suspect]
     Indication: ACNE
     Dosage: 1 DF QD TOPICAL
     Route: 061
     Dates: start: 20090201

REACTIONS (5)
  - DRY SKIN [None]
  - INFLAMMATION [None]
  - PRURITUS [None]
  - RASH ERYTHEMATOUS [None]
  - SKIN IRRITATION [None]
